FAERS Safety Report 13255770 (Version 1)
Quarter: 2017Q1

REPORT INFORMATION
  Report Type: Spontaneous
  Country: BE (occurrence: BE)
  Receive Date: 20170221
  Receipt Date: 20170221
  Transmission Date: 20170428
  Serious: Yes (Other)
  Sender: FDA-Public Use
  Company Number: BE-CORDEN PHARMA LATINA S.P.A.-BE-2017COR000024

PATIENT
  Age: 61 Year
  Sex: Male

DRUGS (7)
  1. CARBOPLATIN. [Suspect]
     Active Substance: CARBOPLATIN
     Indication: NON-HODGKIN^S LYMPHOMA
     Dosage: R-ICE THERAPY
  2. ETOPOSIDE. [Suspect]
     Active Substance: ETOPOSIDE
     Dosage: 15 MG/M2, ON DAYS 2, 3, 4, 5 (BEAM THERAPY)
  3. IFOSFAMIDE. [Suspect]
     Active Substance: IFOSFAMIDE
     Indication: NON-HODGKIN^S LYMPHOMA
     Dosage: R-ICE THERAPY
  4. CYTARABINE. [Suspect]
     Active Substance: CYTARABINE
     Indication: NON-HODGKIN^S LYMPHOMA
     Dosage: 2 X 100 MG/M2, ON DAYS 2, 3, 4, 5 (BEAM THERAPY)
  5. MELPHALAN [Suspect]
     Active Substance: MELPHALAN
     Indication: NON-HODGKIN^S LYMPHOMA
     Dosage: 30 MG/M2, ON DAY 6 (BEAM THERAPY)
  6. RITUXIMAB [Suspect]
     Active Substance: RITUXIMAB
     Indication: NON-HODGKIN^S LYMPHOMA
     Dosage: R-ICE THERAPY
  7. ETOPOSIDE. [Suspect]
     Active Substance: ETOPOSIDE
     Indication: NON-HODGKIN^S LYMPHOMA
     Dosage: R-ICE THERAPY

REACTIONS (1)
  - Kaposi^s sarcoma [Recovered/Resolved]
